FAERS Safety Report 19592630 (Version 1)
Quarter: 2021Q3

REPORT INFORMATION
  Report Type: Spontaneous
  Country: US (occurrence: US)
  Receive Date: 20210721
  Receipt Date: 20210721
  Transmission Date: 20211014
  Serious: Yes (Death)
  Sender: FDA-Public Use
  Company Number: None

PATIENT
  Age: 68 Year
  Sex: Female

DRUGS (6)
  1. CISPLATIN. [Suspect]
     Active Substance: CISPLATIN
     Indication: CERVIX CARCINOMA
     Dosage: ?          OTHER FREQUENCY:EVERY 21DAYS;?
     Route: 042
  2. FAMOTIDINE 20 MG/2 ML [Concomitant]
  3. PALONOSETRON 0.25 MG [Concomitant]
  4. FOSAPREPITANT [Suspect]
     Active Substance: FOSAPREPITANT
     Indication: CERVIX CARCINOMA
     Dosage: ?          OTHER FREQUENCY:EVERY 21DAYS;?
     Route: 042
  5. DEXAMETHASONE 10MG/ML [Concomitant]
     Active Substance: DEXAMETHASONE SODIUM PHOSPHATE
  6. DIPHENHYDRAMINE 50 MG/ML [Concomitant]
     Active Substance: DIPHENHYDRAMINE

REACTIONS (1)
  - Death [None]

NARRATIVE: CASE EVENT DATE: 20210709
